FAERS Safety Report 6419221-1 (Version None)
Quarter: 2009Q4

REPORT INFORMATION
  Report Type: 
  Country: None (occurrence: None)
  Receive Date: 20091028
  Receipt Date: 20091028
  Transmission Date: 20100525
  Serious: Yes (Hospitalization)
  Sender: FDA-Public Use
  Company Number: None

PATIENT
  Sex: Male
  Weight: 99.5 kg

DRUGS (4)
  1. FLUOROURACIL [Suspect]
     Dosage: 5600 MG
     Dates: end: 20090917
  2. BEVACIZUMAB (RHUMAB VEGF) [Suspect]
     Dosage: 400 MG
     Dates: end: 20090915
  3. LEUCOVORIN CALCIUM [Suspect]
     Dosage: 800 MG
     Dates: end: 20090915
  4. ELOXATIN [Suspect]
     Dosage: 170 MG
     Dates: end: 20090915

REACTIONS (5)
  - ASTHENIA [None]
  - BLOOD CREATININE INCREASED [None]
  - HYPOPHAGIA [None]
  - NAUSEA [None]
  - RENAL FAILURE ACUTE [None]
